FAERS Safety Report 19936721 (Version 1)
Quarter: 2021Q4

REPORT INFORMATION
  Report Type: Report from Study
  Country: US (occurrence: US)
  Receive Date: 20211008
  Receipt Date: 20211008
  Transmission Date: 20220303
  Serious: Yes (Hospitalization)
  Sender: FDA-Public Use
  Company Number: US-BAXTER-2021BAX031211

PATIENT
  Age: 23 Year
  Sex: Male
  Weight: 52.3 kg

DRUGS (18)
  1. CYTOXAN [Suspect]
     Active Substance: CYCLOPHOSPHAMIDE
     Indication: Desmoplastic small round cell tumour
     Route: 048
     Dates: start: 20191226
  2. CYCLOPHOSPHAMIDE [Suspect]
     Active Substance: CYCLOPHOSPHAMIDE
     Indication: Desmoplastic small round cell tumour
     Route: 065
     Dates: start: 20191226, end: 20200718
  3. CYCLOPHOSPHAMIDE [Suspect]
     Active Substance: CYCLOPHOSPHAMIDE
     Indication: No adverse event
  4. IFEX [Suspect]
     Active Substance: IFOSFAMIDE
     Indication: Desmoplastic small round cell tumour
     Route: 065
     Dates: start: 20200113, end: 20200731
  5. IFEX [Suspect]
     Active Substance: IFOSFAMIDE
     Indication: No adverse event
  6. DOXIL [Suspect]
     Active Substance: DOXORUBICIN HYDROCHLORIDE
     Indication: Desmoplastic small round cell tumour
     Route: 065
     Dates: start: 20191226, end: 20200528
  7. DOXIL [Suspect]
     Active Substance: DOXORUBICIN HYDROCHLORIDE
     Indication: No adverse event
  8. VINORELBINE [Suspect]
     Active Substance: VINORELBINE TARTRATE
     Indication: Desmoplastic small round cell tumour
     Dosage: REGIMENT 1.
     Route: 042
     Dates: start: 20191226, end: 20210512
  9. ACETAMINOPHEN [Concomitant]
     Active Substance: ACETAMINOPHEN
     Indication: Tumour pain
     Route: 065
     Dates: start: 20210119
  10. LIDOCAINE\PRILOCAINE [Concomitant]
     Active Substance: LIDOCAINE\PRILOCAINE
     Indication: Premedication
     Route: 065
     Dates: start: 20200113
  11. IOVERSOL [Concomitant]
     Active Substance: IOVERSOL
     Indication: Premedication
     Route: 065
     Dates: start: 20210427
  12. HEPARIN [Concomitant]
     Active Substance: HEPARIN SODIUM
     Indication: Prophylaxis
     Route: 065
     Dates: start: 20210427
  13. PERFLUTREN [Concomitant]
     Active Substance: PERFLUTREN
     Indication: Prophylaxis
     Route: 065
     Dates: start: 20210427
  14. DEXAMETHASONE [Concomitant]
     Active Substance: DEXAMETHASONE
     Indication: Premedication
     Route: 065
     Dates: start: 20210505
  15. PROCHLORPERAZINE [Concomitant]
     Active Substance: PROCHLORPERAZINE
     Indication: Nausea
     Route: 065
     Dates: start: 20210510, end: 20210523
  16. CYCLOBENZAPRINE [Concomitant]
     Active Substance: CYCLOBENZAPRINE
     Indication: Tumour pain
     Route: 065
     Dates: start: 20210512
  17. ONDANSETRON [Concomitant]
     Active Substance: ONDANSETRON
     Indication: Nausea
     Route: 065
     Dates: start: 20210523
  18. MAGNESIUM SULFATE [Concomitant]
     Active Substance: MAGNESIUM SULFATE
     Indication: Vomiting
     Route: 065
     Dates: start: 20210523, end: 20210525

REACTIONS (1)
  - Small intestinal obstruction [Recovered/Resolved with Sequelae]

NARRATIVE: CASE EVENT DATE: 20210523
